FAERS Safety Report 5972881-1 (Version None)
Quarter: 2008Q4

REPORT INFORMATION
  Report Type: 
  Country: None (occurrence: None)
  Receive Date: 20081126
  Receipt Date: 20081126
  Transmission Date: 20090506
  Serious: Yes (Other)
  Sender: FDA-Public Use
  Company Number: None

PATIENT
  Age: 81 Year
  Sex: Female
  Weight: 46 kg

DRUGS (17)
  1. TRANEXAMIC ACID PFIZER [Suspect]
     Indication: CARDIOVASCULAR DISORDER
     Dosage: 30MG/KG XL IV BOLUS  16MG/KG/HR INTRAOP  IV DRIP
     Route: 040
     Dates: start: 20080902, end: 20080902
  2. TRANEXAMIC ACID PFIZER [Suspect]
     Indication: PROCOAGULANT THERAPY
     Dosage: 30MG/KG XL IV BOLUS  16MG/KG/HR INTRAOP  IV DRIP
     Route: 040
     Dates: start: 20080902, end: 20080902
  3. TRANEXAMIC ACID PFIZER [Suspect]
     Indication: SURGERY
     Dosage: 30MG/KG XL IV BOLUS  16MG/KG/HR INTRAOP  IV DRIP
     Route: 040
     Dates: start: 20080902, end: 20080902
  4. . [Concomitant]
  5. MIDAZOLAM HCL [Concomitant]
  6. PROPOFOL [Concomitant]
  7. SEVOFLURANE [Concomitant]
  8. PANCURONIUM [Concomitant]
  9. CEFAZOLIN [Concomitant]
  10. INSULIN [Concomitant]
  11. DOBUTAMINE HCL [Concomitant]
  12. NITROGLYCERIN [Concomitant]
  13. FUROSEMIDE [Concomitant]
  14. CALCIUM CHLORIDE [Concomitant]
  15. HEPARIN [Concomitant]
  16. PROTAMINE SULFATE [Concomitant]
  17. METHYLPREDNISOLONE 16MG TAB [Concomitant]

REACTIONS (3)
  - CONVULSION [None]
  - DEPRESSED LEVEL OF CONSCIOUSNESS [None]
  - HEMIPARESIS [None]
